FAERS Safety Report 4312747-6 (Version None)
Quarter: 2004Q1

REPORT INFORMATION
  Report Type: 
  Country: None (occurrence: None)
  Receive Date: 20040302
  Receipt Date: 20031204
  Transmission Date: 20041129
  Serious: No
  Sender: FDA-Public Use
  Company Number: 701373

PATIENT
  Age: 70 Year
  Sex: Male
  Weight: 69.8539 kg

DRUGS (1)
  1. AMEVIVE [Suspect]
     Indication: PSORIASIS
     Dosage: 15 MG QW IM
     Route: 030
     Dates: start: 20030901, end: 20031114

REACTIONS (3)
  - CD4 LYMPHOCYTES DECREASED [None]
  - PRURITUS [None]
  - T-LYMPHOCYTE COUNT DECREASED [None]
